FAERS Safety Report 6092266-X (Version None)
Quarter: 2009Q1

REPORT INFORMATION
  Report Type: 
  Country: None (occurrence: None)
  Receive Date: 20090225
  Receipt Date: 20090216
  Transmission Date: 20090719
  Serious: Yes (Congenital Anomaly)
  Sender: FDA-Public Use
  Company Number: A0770282A

PATIENT
  Sex: Male
  Weight: 1.5 kg

DRUGS (4)
  1. COMBIVIR [Suspect]
     Indication: HIV INFECTION
     Dosage: 2TAB PER DAY
     Dates: start: 20080415
  2. LAMIVUDINE [Suspect]
     Indication: HIV INFECTION
     Dosage: 300MG PER DAY
     Dates: end: 20080415
  3. DIDANOSINE [Concomitant]
     Indication: HIV INFECTION
     Dosage: 125MG PER DAY
     Dates: end: 20080415
  4. KALETRA [Concomitant]

REACTIONS (4)
  - DRUG EXPOSURE DURING PREGNANCY [None]
  - FOETAL GROWTH RETARDATION [None]
  - PREMATURE BABY [None]
  - TRISOMY 21 [None]
